FAERS Safety Report 24173113 (Version 5)
Quarter: 2024Q4

REPORT INFORMATION
  Report Type: Spontaneous
  Country: GR (occurrence: GR)
  Receive Date: 20240805
  Receipt Date: 20241223
  Transmission Date: 20250114
  Serious: No
  Sender: PFIZER
  Company Number: GR-PFIZER INC-PV202400100433

PATIENT
  Age: 14 Year
  Sex: Male
  Weight: 47 kg

DRUGS (2)
  1. GENOTROPIN [Suspect]
     Active Substance: SOMATROPIN
     Indication: Short stature
     Dosage: 1.6MGX3 DAYS + 1.4MGX3 DAYS + 1 DAY OFF / 6 DAYS
     Route: 058
     Dates: start: 202310
  2. GENOTROPIN [Suspect]
     Active Substance: SOMATROPIN
     Dosage: 1.6MGX3 DAYS + 1.4MGX3 DAYS + 1 DAY OFF / 6 DAYS
     Route: 058
     Dates: start: 202310

REACTIONS (2)
  - Device use error [Unknown]
  - Device breakage [Unknown]

NARRATIVE: CASE EVENT DATE: 20240730
